FAERS Safety Report 9406403 (Version 3)
Quarter: 2015Q4

REPORT INFORMATION
  Report Type: Report from Study
  Country: US (occurrence: US)
  Receive Date: 20130718
  Receipt Date: 20151013
  Transmission Date: 20160305
  Serious: Yes (Hospitalization)
  Sender: FDA-Public Use
  Company Number: US-ROCHE-1240039

PATIENT
  Sex: Male
  Weight: 91 kg

DRUGS (20)
  1. FOLIC ACID. [Concomitant]
     Active Substance: FOLIC ACID
     Route: 048
  2. ARANESP [Concomitant]
     Active Substance: DARBEPOETIN ALFA
     Route: 065
  3. OXYCODONE [Concomitant]
     Active Substance: OXYCODONE
     Dosage: EVERY 4-6 HOURS AS NEEDED
     Route: 048
  4. HALAZEPAM [Concomitant]
     Active Substance: HALAZEPAM
     Route: 048
  5. ASA [Concomitant]
     Active Substance: ASPIRIN
     Route: 048
  6. CYCLOSPORINE. [Concomitant]
     Active Substance: CYCLOSPORINE
     Route: 048
     Dates: start: 20110811
  7. CYCLOSPORINE. [Concomitant]
     Active Substance: CYCLOSPORINE
     Route: 065
  8. LEVOTHYROXINE. [Concomitant]
     Active Substance: LEVOTHYROXINE
     Route: 065
  9. ZYPREXA [Concomitant]
     Active Substance: OLANZAPINE
     Route: 065
  10. PEGASYS [Suspect]
     Active Substance: PEGINTERFERON ALFA-2A
     Indication: HEPATITIS C
     Route: 058
     Dates: start: 201205
  11. XANAX [Concomitant]
     Active Substance: ALPRAZOLAM
     Route: 048
  12. OXYCODONE [Concomitant]
     Active Substance: OXYCODONE
     Dosage: 3-4 TIMES A DAY PRN
     Route: 048
  13. DOCUSATE SODIUM. [Concomitant]
     Active Substance: DOCUSATE SODIUM
     Route: 065
  14. PROTONIX (UNITED STATES) [Concomitant]
     Route: 065
  15. COPEGUS [Suspect]
     Active Substance: RIBAVIRIN
     Indication: HEPATITIS C
     Dosage: 200 MG Q AM
     Route: 048
  16. FENTANYL. [Concomitant]
     Active Substance: FENTANYL
     Route: 065
  17. COPEGUS [Suspect]
     Active Substance: RIBAVIRIN
     Route: 048
  18. CELLCEPT [Suspect]
     Active Substance: MYCOPHENOLATE MOFETIL\MYCOPHENOLATE MOFETIL HYDROCHLORIDE
     Indication: IMMUNOSUPPRESSION
     Dosage: 500MG IN THE MORNING/250MG IN THE EVENING?500 MG SPLIT DOSE 2/1
     Route: 048
  19. SYNTHROID [Concomitant]
     Active Substance: LEVOTHYROXINE SODIUM
     Route: 048
  20. PROTONIX (UNITED STATES) [Concomitant]
     Route: 048

REACTIONS (4)
  - Blood creatinine increased [Recovered/Resolved]
  - Hepatitis C [Unknown]
  - Liver transplant rejection [Recovered/Resolved]
  - Renal function test abnormal [Unknown]
